FAERS Safety Report 12848403 (Version 1)
Quarter: 2016Q4

REPORT INFORMATION
  Report Type: Spontaneous
  Country: US (occurrence: US)
  Receive Date: 20161014
  Receipt Date: 20161014
  Transmission Date: 20170207
  Serious: No
  Sender: FDA-Public Use
  Company Number: US-JNJFOC-20160909651

PATIENT
  Sex: Female

DRUGS (8)
  1. IBUPROFEN. [Suspect]
     Active Substance: IBUPROFEN
     Indication: PRURITUS
     Route: 065
     Dates: start: 201607
  2. IBUPROFEN. [Suspect]
     Active Substance: IBUPROFEN
     Indication: INJECTION RELATED REACTION
     Route: 065
     Dates: start: 201607
  3. GLATIRAMER [Concomitant]
     Active Substance: GLATIRAMER
     Indication: MULTIPLE SCLEROSIS
     Route: 065
     Dates: start: 201607
  4. BENADRYL [Suspect]
     Active Substance: DIPHENHYDRAMINE HYDROCHLORIDE
     Indication: PRURITUS
     Route: 065
     Dates: start: 201607
  5. IBUPROFEN. [Suspect]
     Active Substance: IBUPROFEN
     Indication: URTICARIA
     Route: 065
     Dates: start: 201607
  6. BENADRYL [Suspect]
     Active Substance: DIPHENHYDRAMINE HYDROCHLORIDE
     Indication: URTICARIA
     Route: 065
     Dates: start: 201607
  7. BENADRYL [Suspect]
     Active Substance: DIPHENHYDRAMINE HYDROCHLORIDE
     Indication: INJECTION RELATED REACTION
     Route: 065
     Dates: start: 201607
  8. VITAMIN D [Concomitant]
     Active Substance: CHOLECALCIFEROL
     Indication: PRODUCT USED FOR UNKNOWN INDICATION
     Route: 065

REACTIONS (2)
  - Drug ineffective for unapproved indication [Unknown]
  - Off label use [Unknown]
